FAERS Safety Report 17837293 (Version 2)
Quarter: 2021Q2

REPORT INFORMATION
  Report Type: Spontaneous
  Country: IN (occurrence: IN)
  Receive Date: 20200529
  Receipt Date: 20210531
  Transmission Date: 20210717
  Serious: Yes (Hospitalization, Other)
  Sender: FDA-Public Use
  Company Number: IN-CIPLA LTD.-2020IN03683

PATIENT

DRUGS (5)
  1. TOPIRAMATE. [Suspect]
     Active Substance: TOPIRAMATE
     Dosage: 400 MILLIGRAM, QD (400 MG/D OVER A PERIOD OF FEW WEEKS)
     Route: 065
  2. TOPIRAMATE. [Suspect]
     Active Substance: TOPIRAMATE
     Indication: PROPHYLAXIS
     Dosage: 1000 MILLIGRAM, QD (PER DAY), 100?MG TABLETS 4?2?4
     Route: 065
  3. LEVETIRACETAM. [Suspect]
     Active Substance: LEVETIRACETAM
     Indication: PROPHYLAXIS
     Dosage: 1000 MILLIGRAM, QD
     Route: 065
  4. TOPIRAMATE. [Suspect]
     Active Substance: TOPIRAMATE
     Indication: WEIGHT DECREASED
     Dosage: 100 MILLIGRAM, UNK
     Route: 065
  5. PHENOBARBITONE [PHENOBARBITAL] [Suspect]
     Active Substance: PHENOBARBITAL
     Indication: PROPHYLAXIS
     Dosage: 120 MILLIGRAM, QD
     Route: 065

REACTIONS (5)
  - Drug abuse [Unknown]
  - Prescription drug used without a prescription [Unknown]
  - Anorexia nervosa [Recovering/Resolving]
  - Borderline personality disorder [Unknown]
  - Weight increased [Recovered/Resolved]
